FAERS Safety Report 9008989 (Version 2)
Quarter: 2013Q1

REPORT INFORMATION
  Report Type: Spontaneous
  Country: US (occurrence: US)
  Receive Date: 20130111
  Receipt Date: 20130222
  Transmission Date: 20140127
  Serious: No
  Sender: FDA-Public Use
  Company Number: US-PFIZER INC-2012188577

PATIENT
  Age: 64 Year
  Sex: Female

DRUGS (4)
  1. LIPITOR [Suspect]
     Indication: HYPERCHOLESTEROLAEMIA
     Dosage: 20 MG DAILY
  2. ASA [Concomitant]
     Dosage: 325 MG, 1X/DAY
  3. DIOVAN HCT [Concomitant]
     Dosage: 12.5/160 MG ONCE DAILY
  4. LASIX [Concomitant]
     Dosage: 40 MG ONCE EVERY MORNING

REACTIONS (1)
  - Renal disorder [Unknown]
